FAERS Safety Report 18917936 (Version 2)
Quarter: 2021Q1

REPORT INFORMATION
  Report Type: Spontaneous
  Country: US (occurrence: US)
  Receive Date: 20210219
  Receipt Date: 20210313
  Transmission Date: 20210420
  Serious: Yes (Death, Hospitalization, Other)
  Sender: FDA-Public Use
  Company Number: US-VIFOR (INTERNATIONAL) INC.-VIT-2021-01658

PATIENT
  Age: 59 Year
  Sex: Female

DRUGS (3)
  1. VELTASSA [Suspect]
     Active Substance: PATIROMER
     Indication: PRODUCT USED FOR UNKNOWN INDICATION
  2. VELTASSA [Suspect]
     Active Substance: PATIROMER
  3. PROPOFOL. [Concomitant]
     Active Substance: PROPOFOL

REACTIONS (16)
  - Sinusitis [Unknown]
  - Brain injury [Fatal]
  - Seizure [Unknown]
  - Pain [Unknown]
  - Unresponsive to stimuli [Unknown]
  - Nervous system disorder [Unknown]
  - Product dose omission issue [Unknown]
  - Myoclonus [Unknown]
  - Ventricular fibrillation [Fatal]
  - Coma [Unknown]
  - Epilepsy [Unknown]
  - Limb discomfort [Unknown]
  - Pulmonary embolism [Unknown]
  - Hyperkalaemia [Unknown]
  - Cardiac arrest [Fatal]
  - End stage renal disease [Fatal]

NARRATIVE: CASE EVENT DATE: 202102
